FAERS Safety Report 15357858 (Version 1)
Quarter: 2018Q3

REPORT INFORMATION
  Report Type: Spontaneous
  Country: CH (occurrence: CH)
  Receive Date: 20180906
  Receipt Date: 20180906
  Transmission Date: 20181010
  Serious: Yes (Other)
  Sender: FDA-Public Use
  Company Number: PHHY2018CH088935

PATIENT
  Sex: Male
  Weight: 3.2 kg

DRUGS (5)
  1. TACROLIMUS. [Suspect]
     Active Substance: TACROLIMUS
     Indication: FOETAL EXPOSURE DURING PREGNANCY
     Route: 064
  2. DACLIZUMAB [Suspect]
     Active Substance: DACLIZUMAB
     Indication: FOETAL EXPOSURE DURING PREGNANCY
     Route: 064
  3. SIROLIMUS. [Suspect]
     Active Substance: SIROLIMUS
     Indication: FOETAL EXPOSURE DURING PREGNANCY
     Route: 064
  4. AZATHIOPRINE. [Suspect]
     Active Substance: AZATHIOPRINE
     Indication: FOETAL EXPOSURE DURING PREGNANCY
     Route: 064
  5. THYMOGLOBULIN [Suspect]
     Active Substance: LAPINE T-LYMPHOCYTE IMMUNE GLOBULIN
     Indication: FOETAL EXPOSURE DURING PREGNANCY
     Route: 064

REACTIONS (2)
  - Anal atresia [Unknown]
  - Foetal exposure timing unspecified [Unknown]
